FAERS Safety Report 15547744 (Version 1)
Quarter: 2018Q4

REPORT INFORMATION
  Report Type: Report from Study
  Country: US (occurrence: US)
  Receive Date: 20181024
  Receipt Date: 20181024
  Transmission Date: 20190205
  Serious: Yes (Hospitalization)
  Sender: FDA-Public Use
  Company Number: US-EXELIXIS-CABO-18016131

PATIENT
  Age: 52 Year
  Sex: Male
  Weight: 67.18 kg

DRUGS (6)
  1. NYSTATIN. [Concomitant]
     Active Substance: NYSTATIN
  2. LENVIMA [Suspect]
     Active Substance: LENVATINIB
  3. AFINITOR [Suspect]
     Active Substance: EVEROLIMUS
  4. CABOMETYX [Suspect]
     Active Substance: CABOZANTINIB S-MALATE
     Indication: RENAL CELL CARCINOMA
     Dosage: 40 MG, QD
     Route: 048
     Dates: start: 201701, end: 201809
  5. PERCOCET [Concomitant]
     Active Substance: ACETAMINOPHEN\OXYCODONE HYDROCHLORIDE
  6. CLOTRIMAZOLE. [Concomitant]
     Active Substance: CLOTRIMAZOLE
     Dosage: UNK

REACTIONS (3)
  - Escherichia infection [Unknown]
  - Septic shock [Unknown]
  - Insomnia [Unknown]

NARRATIVE: CASE EVENT DATE: 2018
